FAERS Safety Report 4639293-4 (Version None)
Quarter: 2005Q2

REPORT INFORMATION
  Report Type: 
  Country: None (occurrence: None)
  Receive Date: 20050418
  Receipt Date: 20050406
  Transmission Date: 20051028
  Serious: Yes (Hospitalization, Other)
  Sender: FDA-Public Use
  Company Number: HQWYE793803FEB04

PATIENT
  Age: 63 Year
  Sex: Female
  Weight: 73 kg

DRUGS (15)
  1. RAPAMUNE [Suspect]
     Indication: PROPHYLAXIS AGAINST TRANSPLANT REJECTION
     Dosage: 5 MG 1X PER 1 DAY,
     Dates: start: 20040121, end: 20040129
  2. PREDNISONE [Suspect]
     Indication: PROPHYLAXIS AGAINST TRANSPLANT REJECTION
  3. PROGRAF [Suspect]
     Indication: PROPHYLAXIS AGAINST TRANSPLANT REJECTION
  4. PREMARIN [Concomitant]
  5. LEVOTHYROXINE SODIUM [Concomitant]
  6. SODIUM BICARBONATE IN PLASTIC CONTAINER [Concomitant]
  7. LEVOBUNOLOL (LEVOBUNOLOL) [Concomitant]
  8. SEPTRA DS [Concomitant]
  9. VALCYTE [Concomitant]
  10. VICODIN [Concomitant]
  11. CLOTRIMAZOLE (CLOTRIMAZOLE) [Concomitant]
  12. METOPROLOL TARTRATE [Concomitant]
  13. EPOGEN [Concomitant]
  14. NORVASC [Concomitant]
  15. INSULIN [Concomitant]

REACTIONS (6)
  - BLOOD CREATININE INCREASED [None]
  - BLOOD UREA INCREASED [None]
  - COMPLICATIONS OF TRANSPLANTED KIDNEY [None]
  - DIALYSIS [None]
  - KIDNEY TRANSPLANT REJECTION [None]
  - URINE OUTPUT DECREASED [None]
